FAERS Safety Report 7339438-1 (Version None)
Quarter: 2011Q1

REPORT INFORMATION
  Report Type: 
  Country: None (occurrence: None)
  Receive Date: 20110308
  Receipt Date: 20101221
  Transmission Date: 20110831
  Serious: No
  Sender: FDA-Public Use
  Company Number: US-AMGEN-USASP2010010547

PATIENT
  Age: 68 Year
  Sex: Female

DRUGS (5)
  1. REMICADE [Concomitant]
  2. PROLIA [Suspect]
     Indication: OSTEOPOROSIS POSTMENOPAUSAL
     Dates: start: 20101216
  3. PREDNISONE TAB [Concomitant]
  4. PREVACID [Concomitant]
  5. ASACOL [Concomitant]

REACTIONS (2)
  - PAIN [None]
  - BONE PAIN [None]
